FAERS Safety Report 12766110 (Version 2)
Quarter: 2016Q3

REPORT INFORMATION
  Report Type: Spontaneous
  Country: IT (occurrence: IT)
  Receive Date: 20160921
  Receipt Date: 20160927
  Transmission Date: 20161109
  Serious: Yes (Death)
  Sender: FDA-Public Use
  Company Number: IT-PFIZER INC-2016437278

PATIENT
  Age: 42 Year
  Sex: Female
  Weight: 58 kg

DRUGS (17)
  1. REYATAZ [Concomitant]
     Active Substance: ATAZANAVIR SULFATE
     Dosage: 400 MG, UNK
     Route: 048
     Dates: start: 20080220, end: 20110512
  2. ETAPIAM [Suspect]
     Active Substance: ETHAMBUTOL HYDROCHLORIDE
     Indication: PULMONARY TUBERCULOSIS
     Dosage: 1200 MG, DAILY
     Route: 048
     Dates: start: 20081220, end: 20090119
  3. AVALOX [Suspect]
     Active Substance: MOXIFLOXACIN HYDROCHLORIDE
     Dosage: UNK
     Route: 048
     Dates: start: 20090227, end: 20090310
  4. AVALOX [Suspect]
     Active Substance: MOXIFLOXACIN HYDROCHLORIDE
     Dosage: UNK
     Route: 048
     Dates: start: 20090310
  5. PORTOLAC [Concomitant]
     Active Substance: LACTITOL
     Dosage: UNK
     Dates: start: 20080305, end: 20100416
  6. HUMATIN [Concomitant]
     Active Substance: PAROMOMYCIN SULFATE
     Dosage: 750 MG, UNK
     Route: 048
     Dates: start: 20090103, end: 20110530
  7. TAVOR (LORAZEPAM) [Concomitant]
     Active Substance: LORAZEPAM
     Dosage: 1 MG, UNK
     Route: 048
     Dates: start: 20090103, end: 20090515
  8. LAEVOLAC EPS [Concomitant]
     Dosage: 3 DF, UNK
     Dates: start: 20090103, end: 20100416
  9. MYCOBUTIN [Suspect]
     Active Substance: RIFABUTIN
     Indication: PULMONARY TUBERCULOSIS
     Dosage: 150 MG, DAILY
     Route: 048
     Dates: start: 20081220, end: 20090119
  10. MYCOBUTIN [Suspect]
     Active Substance: RIFABUTIN
     Dosage: UNK
     Route: 048
     Dates: start: 20090913
  11. ETAPIAM [Suspect]
     Active Substance: ETHAMBUTOL HYDROCHLORIDE
     Dosage: UNK
     Route: 048
     Dates: start: 20090227, end: 20090310
  12. MYCOBUTIN [Suspect]
     Active Substance: RIFABUTIN
     Dosage: UNK
     Route: 048
     Dates: start: 20090227, end: 20090310
  13. ETAPIAM [Suspect]
     Active Substance: ETHAMBUTOL HYDROCHLORIDE
     Dosage: UNK
     Route: 048
     Dates: start: 20090313
  14. TRUVADA [Concomitant]
     Active Substance: EMTRICITABINE\TENOFOVIR DISOPROXIL FUMARATE
     Dosage: 1 DF, UNK
     Route: 048
     Dates: start: 20080220, end: 20130520
  15. KONAKION [Concomitant]
     Active Substance: PHYTONADIONE
     Dosage: 20 MG, UNK
     Route: 048
     Dates: start: 20080305, end: 20100416
  16. AVALOX [Suspect]
     Active Substance: MOXIFLOXACIN HYDROCHLORIDE
     Indication: PULMONARY TUBERCULOSIS
     Dosage: 400 MG, DAILY
     Route: 048
     Dates: start: 20081220, end: 20090119
  17. STUGERON [Concomitant]
     Active Substance: CINNARIZINE
     Dosage: 225 MG, UNK
     Route: 048
     Dates: start: 20080305, end: 20100416

REACTIONS (2)
  - Hepatotoxicity [Fatal]
  - Hypertransaminasaemia [Fatal]

NARRATIVE: CASE EVENT DATE: 20090108
